FAERS Safety Report 23159795 (Version 2)
Quarter: 2023Q4

REPORT INFORMATION
  Report Type: Spontaneous
  Country: BR (occurrence: None)
  Receive Date: 20231108
  Receipt Date: 20231207
  Transmission Date: 20240110
  Serious: Yes (Life-Threatening, Other)
  Sender: FDA-Public Use
  Company Number: 2023A254400

PATIENT
  Age: 757 Month
  Sex: Female
  Weight: 80 kg

DRUGS (12)
  1. TAGRISSO [Suspect]
     Active Substance: OSIMERTINIB
     Indication: Lung neoplasm malignant
     Dosage: A TABLET
     Route: 048
     Dates: start: 20230301
  2. DEXILANT [Concomitant]
     Active Substance: DEXLANSOPRAZOLE
  3. AMLODIPINE\VALSARTAN [Concomitant]
     Active Substance: AMLODIPINE\VALSARTAN
  4. TREZOR [Concomitant]
  5. PURAN [Concomitant]
     Active Substance: LEVOTHYROXINE SODIUM
  6. XANTINON [Concomitant]
  7. RIVOTRIL [Concomitant]
     Active Substance: CLONAZEPAM
  8. CLOMIPRAMINE [Concomitant]
     Active Substance: CLOMIPRAMINE
  9. CALCITRAN MDK [Concomitant]
  10. METFORMIN HYDROCHLORIDE [Concomitant]
     Active Substance: METFORMIN HYDROCHLORIDE
  11. BECLOMETHASONE\FORMOTEROL [Concomitant]
     Active Substance: BECLOMETHASONE\FORMOTEROL
  12. ALBUTEROL [Concomitant]
     Active Substance: ALBUTEROL

REACTIONS (3)
  - Asthmatic crisis [Not Recovered/Not Resolved]
  - Fatigue [Not Recovered/Not Resolved]
  - Cough [Not Recovered/Not Resolved]

NARRATIVE: CASE EVENT DATE: 20230101
